FAERS Safety Report 25944758 (Version 1)
Quarter: 2025Q4

REPORT INFORMATION
  Report Type: Spontaneous
  Country: US (occurrence: US)
  Receive Date: 20251021
  Receipt Date: 20251021
  Transmission Date: 20260117
  Serious: No
  Sender: Phathom Pharmaceuticals
  Company Number: US-PHATHOM PHARMACEUTICALS INC.-2025PHT01996

PATIENT
  Age: 62 Year
  Sex: Female

DRUGS (13)
  1. VOQUEZNA [Suspect]
     Active Substance: VONOPRAZAN FUMARATE
     Dosage: 20 MG, 1X/DAY
     Route: 048
     Dates: start: 20250604, end: 2025
  2. VOQUEZNA [Suspect]
     Active Substance: VONOPRAZAN FUMARATE
     Dosage: 10 MG (HALF TABLET), 1X/DAY
     Route: 048
     Dates: start: 2025
  3. ONE A DAY [MINERALS NOS;VITAMINS NOS] [Concomitant]
  4. VITAMIN B2 [Concomitant]
     Active Substance: RIBOFLAVIN
  5. VITAMIN B COMPLEX [Concomitant]
     Active Substance: CYANOCOBALAMIN\DEXPANTHENOL\NIACINAMIDE\PYRIDOXINE HYDROCHLORIDE\RIBOFLAVIN 5^-PHOSPHATE SODIUM\THIA
  6. MAGNESIUM [Concomitant]
     Active Substance: MAGNESIUM
  7. SELENIUM [Concomitant]
     Active Substance: SELENIUM
  8. VENLAFAXINE [Concomitant]
     Active Substance: VENLAFAXINE HYDROCHLORIDE
  9. SOOLANTRA [Concomitant]
     Active Substance: IVERMECTIN
  10. BUDESONIDE\FORMOTEROL [Concomitant]
     Active Substance: BUDESONIDE\FORMOTEROL
  11. ESTRADIOL [Concomitant]
     Active Substance: ESTRADIOL
     Route: 062
  12. RABEPRAZOLE [Concomitant]
     Active Substance: RABEPRAZOLE
  13. SYNTHROID [Concomitant]
     Active Substance: LEVOTHYROXINE SODIUM

REACTIONS (2)
  - Peripheral swelling [Not Recovered/Not Resolved]
  - Wrong technique in product usage process [Not Recovered/Not Resolved]

NARRATIVE: CASE EVENT DATE: 20250101
